FAERS Safety Report 16296107 (Version 3)
Quarter: 2019Q4

REPORT INFORMATION
  Report Type: Report from Study
  Country: DE (occurrence: DE)
  Receive Date: 20190509
  Receipt Date: 20191030
  Transmission Date: 20200122
  Serious: Yes (Hospitalization, Other)
  Sender: FDA-Public Use
  Company Number: DE-BRISTOL-MYERS SQUIBB COMPANY-BMS-2018-063042

PATIENT
  Age: 57 Year
  Sex: Male

DRUGS (12)
  1. BISOPROLOL                         /00802602/ [Concomitant]
     Active Substance: BISOPROLOL
     Indication: CARDIOVASCULAR DISORDER
     Dosage: 5 MG, UNK
     Route: 065
  2. NIVOLUMAB [Suspect]
     Active Substance: NIVOLUMAB
     Indication: SQUAMOUS CELL CARCINOMA OF HEAD AND NECK
     Dosage: 240 MG, Q2WK
     Route: 042
     Dates: start: 20180625, end: 20190221
  3. NOVALGIN                           /00169801/ [Concomitant]
     Active Substance: ACETAMINOPHEN\CAFFEINE\PROPYPHENAZONE
     Indication: PRODUCT USED FOR UNKNOWN INDICATION
     Dosage: 30 GTT, QID
     Route: 065
     Dates: end: 20180820
  4. FENTANYL                           /00174602/ [Concomitant]
     Active Substance: FENTANYL
     Indication: PRODUCT USED FOR UNKNOWN INDICATION
     Dosage: UNK
     Route: 062
     Dates: start: 20180628
  5. VOLTAREN [Concomitant]
     Active Substance: DICLOFENAC SODIUM
     Indication: PRODUCT USED FOR UNKNOWN INDICATION
     Dosage: UNK
     Route: 065
     Dates: end: 20180821
  6. CANDESARTAN                        /01349502/ [Concomitant]
     Active Substance: CANDESARTAN
     Indication: CARDIOVASCULAR DISORDER
     Dosage: 8 MG, BID
     Route: 065
  7. NOVALGIN                           /00169801/ [Concomitant]
     Active Substance: ACETAMINOPHEN\CAFFEINE\PROPYPHENAZONE
     Indication: PRODUCT USED FOR UNKNOWN INDICATION
     Dosage: 30 DROP, BID
     Route: 065
     Dates: start: 20180821
  8. PARACETAMOL [Concomitant]
     Active Substance: ACETAMINOPHEN
     Indication: MALIGNANT NEOPLASM PROGRESSION
     Dosage: UNK
     Route: 065
     Dates: start: 20190420
  9. PANTOPRAZOLE                       /01263204/ [Concomitant]
     Active Substance: PANTOPRAZOLE SODIUM
     Indication: GASTROINTESTINAL DISORDER
     Dosage: 40 MG, BID
     Route: 065
  10. MORPHINE [Concomitant]
     Active Substance: MORPHINE
     Indication: MALIGNANT NEOPLASM PROGRESSION
     Dosage: 10 MILLIGRAM, BID
     Route: 065
  11. GLANDOMED [Concomitant]
     Indication: PRODUCT USED FOR UNKNOWN INDICATION
     Dosage: UNK
     Route: 065
     Dates: start: 20180619
  12. CLEXANE [Concomitant]
     Active Substance: ENOXAPARIN SODIUM
     Indication: PROPHYLAXIS
     Dosage: 0.4 MILLILITER
     Route: 065
     Dates: start: 20180906, end: 20180907

REACTIONS (8)
  - Hyponatraemia [Recovering/Resolving]
  - Dysphagia [Not Recovered/Not Resolved]
  - Anaemia [Recovered/Resolved]
  - Leukopenia [Recovered/Resolved]
  - Oral pain [Unknown]
  - Mouth haemorrhage [Recovered/Resolved]
  - General physical health deterioration [Recovering/Resolving]
  - Malignant neoplasm progression [Not Recovered/Not Resolved]

NARRATIVE: CASE EVENT DATE: 20180625
